FAERS Safety Report 12855866 (Version 1)
Quarter: 2016Q4

REPORT INFORMATION
  Report Type: Spontaneous
  Country: ES (occurrence: None)
  Receive Date: 20161014
  Receipt Date: 20161014
  Transmission Date: 20170207
  Serious: Yes (Hospitalization)
  Sender: FDA-Public Use
  Company Number: ES2016K1825LIT

PATIENT
  Age: 24 Year
  Sex: Male

DRUGS (1)
  1. ENALAPRIL WORLD (ENALAPRIL) UNKNOWN [Suspect]
     Active Substance: ENALAPRIL

REACTIONS (2)
  - Renal tubular acidosis [None]
  - Unmasking of previously unidentified disease [None]
